FAERS Safety Report 23989077 (Version 2)
Quarter: 2024Q3

REPORT INFORMATION
  Report Type: Spontaneous
  Country: US (occurrence: US)
  Receive Date: 20240619
  Receipt Date: 20240731
  Transmission Date: 20241016
  Serious: Yes (Other)
  Sender: AUROBINDO
  Company Number: US-MLMSERVICE-20240403-PI012798-00270-1

PATIENT
  Age: 3 Decade
  Sex: Male

DRUGS (16)
  1. METHYLPREDNISOLONE [Suspect]
     Active Substance: METHYLPREDNISOLONE
     Indication: Dermatomyositis
     Dosage: 48 MILLIGRAM, ONCE A DAY
     Route: 042
  2. METHYLPREDNISOLONE [Suspect]
     Active Substance: METHYLPREDNISOLONE
     Indication: Immunosuppressant drug therapy
  3. PREDNISONE [Suspect]
     Active Substance: PREDNISONE
     Indication: Poikiloderma
     Dosage: 60 MILLIGRAM, 4-WEEK TRIAL OF PREDNISONE (60?MG ? 2 WEEKS, 40?MG ? 1?WEEK, 60?MG ? 1?WEEK)
     Route: 065
  4. PREDNISONE [Suspect]
     Active Substance: PREDNISONE
     Dosage: 40 MILLIGRAM, 4-WEEK TRIAL OF PREDNISONE (60?MG ? 2 WEEKS, 40?MG ? 1?WEEK, 60?MG ? 1?WEEK)
     Route: 065
  5. PREDNISONE [Suspect]
     Active Substance: PREDNISONE
     Dosage: 60 MILLIGRAM, 4-WEEK TRIAL OF PREDNISONE (60?MG ? 2 WEEKS, 40?MG ? 1?WEEK, 60?MG ? 1?WEEK)
     Route: 065
  6. TACROLIMUS [Suspect]
     Active Substance: TACROLIMUS
     Indication: Poikiloderma
     Dosage: UNK
     Route: 061
  7. MUPIROCIN [Suspect]
     Active Substance: MUPIROCIN
     Indication: Poikiloderma
     Dosage: UNK
     Route: 065
  8. CEFTRIAXONE [Concomitant]
     Active Substance: CEFTRIAXONE\CEFTRIAXONE SODIUM
     Indication: Diverticulitis
     Dosage: UNK
     Route: 042
  9. HEPARIN [Concomitant]
     Active Substance: HEPARIN SODIUM
     Indication: Anticoagulant therapy
     Dosage: UNK
     Route: 042
  10. HEPARIN [Concomitant]
     Active Substance: HEPARIN SODIUM
     Indication: Pulmonary embolism
  11. METRONIDAZOLE [Concomitant]
     Active Substance: METRONIDAZOLE
     Indication: Diverticulitis
     Dosage: UNK
     Route: 042
  12. MYCOPHENOLATE MOFETIL [Concomitant]
     Active Substance: MYCOPHENOLATE MOFETIL
     Indication: Dermatomyositis
     Dosage: 500 MILLIGRAM, ONCE A DAY, 500?MG DAILY ORALLY FOR 9 MONTHS
     Route: 048
  13. MYCOPHENOLATE MOFETIL [Concomitant]
     Active Substance: MYCOPHENOLATE MOFETIL
     Dosage: 1500 MILLIGRAM, INCREASED
     Route: 048
  14. TACROLIMUS [Concomitant]
     Active Substance: TACROLIMUS
     Indication: Dermatomyositis
     Dosage: 1 MILLIGRAM
     Route: 048
  15. Immunoglobulin [Concomitant]
     Indication: Adjuvant therapy
     Dosage: 140 GRAM
     Route: 042
  16. Immunoglobulin [Concomitant]
     Dosage: 2 GRAM PER KILOGRAM ( OVER 4 DAYS)
     Route: 042

REACTIONS (4)
  - Substance-induced psychotic disorder [Recovering/Resolving]
  - Febrile neutropenia [Recovering/Resolving]
  - Septic shock [Recovering/Resolving]
  - Drug ineffective [Unknown]
